FAERS Safety Report 10062931 (Version 2)
Quarter: 2014Q2

REPORT INFORMATION
  Report Type: Spontaneous
  Country: PL (occurrence: PL)
  Receive Date: 20140407
  Receipt Date: 20140417
  Transmission Date: 20141212
  Serious: Yes (Other)
  Sender: FDA-Public Use
  Company Number: PHHY2014PL037815

PATIENT
  Age: 16 Year
  Sex: Female
  Weight: 48 kg

DRUGS (2)
  1. METHOTREXATE [Suspect]
     Indication: OSTEOSARCOMA
     Dosage: 12 G/M2
     Route: 042
  2. FUROSEMIDE [Concomitant]
     Indication: OEDEMA

REACTIONS (14)
  - Toxicity to various agents [Recovered/Resolved]
  - Renal failure acute [Recovered/Resolved]
  - Acute hepatic failure [Recovered/Resolved]
  - Renal impairment [Recovered/Resolved]
  - Hepatic function abnormal [Recovered/Resolved]
  - Vomiting [Unknown]
  - Oedema [Unknown]
  - Anaemia [Recovering/Resolving]
  - Leukopenia [Recovering/Resolving]
  - Mucosal ulceration [Unknown]
  - Gastrointestinal mucosal disorder [Unknown]
  - Gastrointestinal haemorrhage [Unknown]
  - Drug level increased [Recovered/Resolved]
  - Platelet count decreased [Recovered/Resolved]
